FAERS Safety Report 7045951-7 (Version None)
Quarter: 2010Q4

REPORT INFORMATION
  Report Type: 
  Country: None (occurrence: None)
  Receive Date: 20101013
  Receipt Date: 20101013
  Transmission Date: 20110411
  Serious: Yes (Other)
  Sender: FDA-Public Use
  Company Number: None

PATIENT
  Age: 44 Year
  Sex: Female
  Weight: 127.0072 kg

DRUGS (2)
  1. OXYCONTIN [Suspect]
     Indication: MYOFASCIAL PAIN SYNDROME
     Dosage: 30 MGS 3 PO
     Route: 048
     Dates: start: 20100924, end: 20101005
  2. OXYCONTIN [Suspect]
     Indication: NEUROPATHY PERIPHERAL
     Dosage: 30 MGS 3 PO
     Route: 048
     Dates: start: 20100924, end: 20101005

REACTIONS (8)
  - CONDITION AGGRAVATED [None]
  - DRUG INEFFECTIVE [None]
  - FLATULENCE [None]
  - GASTROOESOPHAGEAL REFLUX DISEASE [None]
  - PAIN [None]
  - PRODUCT QUALITY ISSUE [None]
  - QUALITY OF LIFE DECREASED [None]
  - UNEVALUABLE EVENT [None]
